FAERS Safety Report 15735212 (Version 2)
Quarter: 2018Q4

REPORT INFORMATION
  Report Type: Spontaneous
  Country: JP (occurrence: JP)
  Receive Date: 20181218
  Receipt Date: 20181227
  Transmission Date: 20190205
  Serious: Yes (Hospitalization, Other)
  Sender: FDA-Public Use
  Company Number: JP-SA-2018SA343849

PATIENT
  Age: 70 Year
  Sex: Male

DRUGS (12)
  1. CALONAL [Concomitant]
     Active Substance: ACETAMINOPHEN
     Indication: PAIN
     Dosage: 1500 MG
     Route: 065
     Dates: start: 20160902
  2. CALONAL [Concomitant]
     Active Substance: ACETAMINOPHEN
     Dosage: 2000 MG
     Route: 065
     Dates: start: 20181025
  3. CALONAL [Concomitant]
     Active Substance: ACETAMINOPHEN
     Dosage: 2000 MG
     Route: 065
     Dates: start: 20180104
  4. LOXONIN [Concomitant]
     Active Substance: LOXOPROFEN SODIUM
     Dosage: 3 DF
     Route: 065
     Dates: start: 20180508
  5. RANMARK [Concomitant]
     Active Substance: DENOSUMAB
     Indication: PRODUCT USED FOR UNKNOWN INDICATION
     Dosage: UNK
     Route: 065
     Dates: start: 20131003
  6. ZYTIGA [Concomitant]
     Active Substance: ABIRATERONE ACETATE
     Indication: PRODUCT USED FOR UNKNOWN INDICATION
     Dosage: UNK
     Route: 065
     Dates: start: 20160310
  7. CALONAL [Concomitant]
     Active Substance: ACETAMINOPHEN
     Dosage: 3000 MG
     Route: 065
     Dates: start: 20180508
  8. JEVTANA [Suspect]
     Active Substance: CABAZITAXEL
     Dosage: UNK
     Route: 041
     Dates: start: 2018
  9. LOXONIN [Concomitant]
     Active Substance: LOXOPROFEN SODIUM
     Indication: PAIN
     Dosage: UNK
     Route: 065
     Dates: start: 20131003
  10. JEVTANA [Suspect]
     Active Substance: CABAZITAXEL
     Indication: PROSTATE CANCER
     Dosage: 80?
     Route: 041
     Dates: start: 20180823
  11. GONAX [Concomitant]
     Active Substance: DEGARELIX
     Indication: PRODUCT USED FOR UNKNOWN INDICATION
     Dosage: UNK
     Route: 065
     Dates: start: 20131003
  12. LOXONIN [Concomitant]
     Active Substance: LOXOPROFEN SODIUM
     Dosage: 2 DF
     Route: 065
     Dates: start: 20181025

REACTIONS (5)
  - Gastroenteritis radiation [Unknown]
  - White blood cell count decreased [Unknown]
  - Constipation [Unknown]
  - Neutrophil count decreased [Unknown]
  - Appendicitis [Unknown]

NARRATIVE: CASE EVENT DATE: 20181014
